FAERS Safety Report 10085914 (Version 2)
Quarter: 2014Q2

REPORT INFORMATION
  Report Type: Spontaneous
  Country: US (occurrence: US)
  Receive Date: 20140418
  Receipt Date: 20140501
  Transmission Date: 20141212
  Serious: Yes (Hospitalization, Other)
  Sender: FDA-Public Use
  Company Number: US-JNJFOC-20140411524

PATIENT
  Age: 47 Year
  Sex: Female
  Weight: 81.63 kg

DRUGS (6)
  1. MOTRIN [Suspect]
     Indication: PRODUCT USED FOR UNKNOWN INDICATION
     Route: 065
  2. ALPRAZOLAM [Suspect]
     Indication: ANXIETY
     Route: 065
     Dates: start: 2012
  3. NAPROXEN SODIUM [Suspect]
     Indication: ANTIINFLAMMATORY THERAPY
     Route: 065
     Dates: end: 20121214
  4. SERTRALINE [Concomitant]
     Indication: DEPRESSION
     Route: 065
  5. VICODIN (HYDROCODONE BITARTRATE, ACETAMINOPHEN) [Concomitant]
     Indication: PAIN
     Route: 065
  6. PERCOCET [Concomitant]
     Indication: PAIN
     Route: 065

REACTIONS (1)
  - Ulcer [Unknown]
